FAERS Safety Report 9501578 (Version 2)
Quarter: 2013Q4

REPORT INFORMATION
  Report Type: Spontaneous
  Country: IT (occurrence: IT)
  Receive Date: 20130905
  Receipt Date: 20131031
  Transmission Date: 20140711
  Serious: Yes (Hospitalization)
  Sender: FDA-Public Use
  Company Number: IT-BAXTER-2013BAX034790

PATIENT
  Age: 80 Year
  Sex: Male
  Weight: 75 kg

DRUGS (6)
  1. ENDOXAN BAXTER [Suspect]
     Indication: WALDENSTROM^S MACROGLOBULINAEMIA
     Route: 042
     Dates: start: 20010418, end: 20070810
  2. VINCRISTINE [Suspect]
     Indication: WALDENSTROM^S MACROGLOBULINAEMIA
     Route: 042
     Dates: start: 20010418, end: 20050726
  3. FLUDARABINE [Suspect]
     Indication: WALDENSTROM^S MACROGLOBULINAEMIA
     Route: 042
     Dates: start: 20070105, end: 20070810
  4. LEUKERAN [Suspect]
     Indication: WALDENSTROM^S MACROGLOBULINAEMIA
     Route: 048
     Dates: start: 20001009, end: 20010331
  5. NOVANTRONE [Suspect]
     Indication: WALDENSTROM^S MACROGLOBULINAEMIA
     Route: 042
     Dates: start: 20050516, end: 20050726
  6. MABTHERA [Suspect]
     Indication: WALDENSTROM^S MACROGLOBULINAEMIA
     Route: 042
     Dates: start: 20070807, end: 20070918

REACTIONS (1)
  - Myelodysplastic syndrome [Not Recovered/Not Resolved]
